FAERS Safety Report 6045192-6 (Version None)
Quarter: 2009Q1

REPORT INFORMATION
  Report Type: 
  Country: None (occurrence: None)
  Receive Date: 20090121
  Receipt Date: 20090109
  Transmission Date: 20090719
  Serious: Yes (Hospitalization)
  Sender: FDA-Public Use
  Company Number: ES-ASTRAZENECA-2009AC00346

PATIENT
  Age: 22178 Day
  Sex: Male

DRUGS (4)
  1. ATENOLOL [Suspect]
     Indication: HYPERTENSION
     Route: 048
     Dates: start: 20080530, end: 20090102
  2. ROSUVASTATIN CODE NOT BROKEN [Suspect]
     Indication: CORONARY ARTERY DISEASE
     Route: 048
     Dates: start: 20080513
  3. ADIRO [Concomitant]
     Indication: CORONARY ARTERY DISEASE
     Dates: start: 20080507
  4. ISCOVER [Concomitant]
     Indication: CORONARY ARTERY DISEASE
     Dates: start: 20080507

REACTIONS (1)
  - MALAISE [None]
